FAERS Safety Report 22912086 (Version 5)
Quarter: 2024Q2

REPORT INFORMATION
  Report Type: Report from Study
  Country: JP (occurrence: JP)
  Receive Date: 20230906
  Receipt Date: 20240415
  Transmission Date: 20240715
  Serious: Yes (Hospitalization)
  Sender: FDA-Public Use
  Company Number: JP-ARGENX-2023-ARGX-JP000045

PATIENT

DRUGS (25)
  1. VYVGART [Suspect]
     Active Substance: EFGARTIGIMOD ALFA-FCAB
     Indication: Myasthenia gravis
     Dosage: 910 MG
     Route: 042
     Dates: start: 20220623, end: 20220714
  2. VYVGART [Suspect]
     Active Substance: EFGARTIGIMOD ALFA-FCAB
     Dosage: 800 MG
     Route: 042
     Dates: start: 20230105, end: 20230126
  3. VYVGART [Suspect]
     Active Substance: EFGARTIGIMOD ALFA-FCAB
     Dosage: 800 MG
     Route: 042
     Dates: start: 20230302, end: 20230327
  4. VYVGART [Suspect]
     Active Substance: EFGARTIGIMOD ALFA-FCAB
     Dosage: 800 MG
     Route: 042
     Dates: start: 20230511, end: 20230601
  5. VYVGART [Suspect]
     Active Substance: EFGARTIGIMOD ALFA-FCAB
     Dosage: 800 MG
     Route: 042
     Dates: start: 20230629, end: 20230720
  6. VYVGART [Suspect]
     Active Substance: EFGARTIGIMOD ALFA-FCAB
     Dosage: 800 MG
     Route: 042
     Dates: start: 20230817, end: 20230907
  7. VYVGART [Suspect]
     Active Substance: EFGARTIGIMOD ALFA-FCAB
     Dosage: 800 MG
     Route: 042
     Dates: start: 20231004, end: 20231025
  8. VYVGART [Suspect]
     Active Substance: EFGARTIGIMOD ALFA-FCAB
     Dosage: 800 MG
     Route: 042
     Dates: start: 20231122, end: 20231213
  9. PREDONINE [Concomitant]
     Active Substance: PREDNISOLONE
     Indication: Myasthenia gravis
     Dosage: 5 MG
     Route: 048
     Dates: start: 2022, end: 20221101
  10. PREDNISOLONE [Concomitant]
     Active Substance: PREDNISOLONE
     Indication: Myasthenia gravis
     Dosage: 4 MG
     Route: 048
     Dates: start: 20221102
  11. PROGRAF [Concomitant]
     Active Substance: TACROLIMUS
     Indication: Myasthenia gravis
     Dosage: 3 MG
     Route: 048
  12. ROSUVASTATIN [Concomitant]
     Active Substance: ROSUVASTATIN
     Indication: Product used for unknown indication
     Dosage: 5 MG
     Route: 048
  13. LOXOPROFEN [Concomitant]
     Active Substance: LOXOPROFEN
     Indication: Product used for unknown indication
     Dosage: 60 MG
     Route: 048
  14. REBAMIPIDE [Concomitant]
     Active Substance: REBAMIPIDE
     Indication: Gastritis prophylaxis
     Dosage: 100 MG
     Route: 048
     Dates: end: 20230215
  15. REBAMIPIDE [Concomitant]
     Active Substance: REBAMIPIDE
     Dosage: 200 MG
     Route: 048
     Dates: start: 20230216
  16. VONOPRAZAN FUMARATE [Concomitant]
     Active Substance: VONOPRAZAN FUMARATE
     Indication: Product used for unknown indication
     Dosage: 10 MG
     Route: 048
     Dates: end: 20240109
  17. VONOPRAZAN FUMARATE [Concomitant]
     Active Substance: VONOPRAZAN FUMARATE
     Dosage: 20 MG
     Route: 048
     Dates: start: 20240110
  18. Hachiazule [Concomitant]
     Indication: Product used for unknown indication
     Dosage: 2 G
     Route: 050
     Dates: start: 202205, end: 20230412
  19. Az [Concomitant]
     Indication: Prophylaxis
     Dosage: 6 G
     Dates: start: 20230413
  20. LINZESS [Concomitant]
     Active Substance: LINACLOTIDE
     Indication: Product used for unknown indication
     Dosage: 0.5 MG
     Route: 048
  21. DAYVIGO [Concomitant]
     Active Substance: LEMBOREXANT
     Indication: Product used for unknown indication
     Dosage: 5 MG
     Route: 048
  22. HEPARINOID [Concomitant]
     Indication: Product used for unknown indication
     Dosage: 50 G
     Route: 050
  23. MOSAPRIDE CITRATE [Concomitant]
     Active Substance: MOSAPRIDE CITRATE
     Indication: Product used for unknown indication
     Dosage: 15 MG
     Route: 048
     Dates: start: 20230511, end: 20231121
  24. MOSAPRIDE CITRATE [Concomitant]
     Active Substance: MOSAPRIDE CITRATE
     Dosage: 10 MG
     Route: 048
     Dates: start: 20231122
  25. EPINASTINE HYDROCHLORIDE [Concomitant]
     Active Substance: EPINASTINE HYDROCHLORIDE
     Indication: Pruritus
     Dosage: 20 MG
     Route: 048
     Dates: start: 20231213

REACTIONS (4)
  - Subcutaneous abscess [Recovering/Resolving]
  - Symptom recurrence [Recovering/Resolving]
  - Weight increased [Unknown]
  - Symptom recurrence [Recovering/Resolving]

NARRATIVE: CASE EVENT DATE: 20220901
